FAERS Safety Report 9630906 (Version 1)
Quarter: 2013Q4

REPORT INFORMATION
  Report Type: Spontaneous
  Country: AU (occurrence: AU)
  Receive Date: 20131018
  Receipt Date: 20131018
  Transmission Date: 20140711
  Serious: Yes (Hospitalization)
  Sender: FDA-Public Use
  Company Number: AU-PFIZER INC-2013297913

PATIENT
  Sex: Male

DRUGS (3)
  1. PRISTIQ [Suspect]
     Indication: ANXIETY
     Dosage: 50 MG, UNK
     Dates: start: 201304
  2. PRISTIQ [Suspect]
     Indication: TENSION
  3. SPIRIVA [Concomitant]
     Dosage: UNK

REACTIONS (3)
  - Cardiac arrest [Unknown]
  - Off label use [Unknown]
  - Therapeutic response unexpected [Unknown]
